FAERS Safety Report 12588487 (Version 2)
Quarter: 2016Q4

REPORT INFORMATION
  Report Type: Spontaneous
  Country: US (occurrence: US)
  Receive Date: 20160725
  Receipt Date: 20161014
  Transmission Date: 20170207
  Serious: No
  Sender: FDA-Public Use
  Company Number: US-JNJFOC-20160623062

PATIENT
  Age: 94 Year
  Sex: Male
  Weight: 86.18 kg

DRUGS (1)
  1. TYLENOL EXTRA STRENGTH [Suspect]
     Active Substance: ACETAMINOPHEN
     Indication: TOOTHACHE
     Route: 048
     Dates: start: 20160623

REACTIONS (2)
  - Product container issue [Unknown]
  - Laceration [Recovered/Resolved]

NARRATIVE: CASE EVENT DATE: 20160623
